FAERS Safety Report 11867997 (Version 1)
Quarter: 2015Q4

REPORT INFORMATION
  Report Type: Spontaneous
  Country: FR (occurrence: FR)
  Receive Date: 20151224
  Receipt Date: 20151224
  Transmission Date: 20160305
  Serious: Yes (Other)
  Sender: FDA-Public Use
  Company Number: FR-JNJFOC-20151211173

PATIENT
  Age: 18 Year
  Sex: Male

DRUGS (4)
  1. RISPERDAL CONSTA [Suspect]
     Active Substance: RISPERIDONE
     Indication: PRODUCT USED FOR UNKNOWN INDICATION
     Route: 030
  2. XEROQUEL [Suspect]
     Active Substance: QUETIAPINE FUMARATE
     Indication: PRODUCT USED FOR UNKNOWN INDICATION
     Route: 048
  3. XEPLION [Suspect]
     Active Substance: PALIPERIDONE PALMITATE
     Indication: PRODUCT USED FOR UNKNOWN INDICATION
     Route: 030
  4. HALDOL [Suspect]
     Active Substance: HALOPERIDOL
     Indication: PRODUCT USED FOR UNKNOWN INDICATION
     Route: 030

REACTIONS (12)
  - Mental retardation [Unknown]
  - Salivary hypersecretion [Unknown]
  - Libido disorder [Unknown]
  - Eating disorder [Unknown]
  - Dyskinesia [Unknown]
  - Headache [Unknown]
  - Somnolence [Recovering/Resolving]
  - Abnormal behaviour [Unknown]
  - Personality disorder [Unknown]
  - Dyslexia [Unknown]
  - Arthropathy [Unknown]
  - Affective disorder [Unknown]

NARRATIVE: CASE EVENT DATE: 2012
